APPROVED DRUG PRODUCT: MEKINIST
Active Ingredient: TRAMETINIB DIMETHYL SULFOXIDE
Strength: EQ 0.05MG BASE/ML
Dosage Form/Route: SOLUTION;ORAL
Application: N217513 | Product #001
Applicant: NOVARTIS PHARMACEUTICALS CORP
Approved: Mar 16, 2023 | RLD: Yes | RS: Yes | Type: RX

PATENTS:
Patent 8703781 | Expires: Oct 15, 2030
Patent 7378423 | Expires: May 29, 2027
Patent 7378423*PED | Expires: Nov 29, 2027
Patent 8703781*PED | Expires: Apr 15, 2031

EXCLUSIVITY:
Code: NP | Date: Mar 16, 2026
Code: ODE-428 | Date: Mar 16, 2030
Code: PED | Date: Sep 16, 2030
Code: PED | Date: Sep 16, 2026